FAERS Safety Report 7498290-4 (Version None)
Quarter: 2011Q2

REPORT INFORMATION
  Report Type: 
  Country: None (occurrence: None)
  Receive Date: 20110524
  Receipt Date: 20110502
  Transmission Date: 20111010
  Serious: Yes (Hospitalization)
  Sender: FDA-Public Use
  Company Number: US-BAYER-201027368NA

PATIENT
  Age: 23 Year
  Sex: Female
  Weight: 104.31 kg

DRUGS (6)
  1. YASMIN [Suspect]
     Indication: PRODUCT USED FOR UNKNOWN INDICATION
     Dosage: UNK UNK, QD
     Route: 048
     Dates: start: 20020101, end: 20080101
  2. FOLIC ACID [Concomitant]
     Indication: SICKLE CELL ANAEMIA
     Dosage: UNK
     Dates: start: 19840101
  3. IBUPROFEN [Concomitant]
     Indication: PAIN
     Dosage: UNK
     Dates: start: 19980101
  4. COUMADIN [Concomitant]
     Dosage: UNK
     Dates: start: 20080101
  5. YAZ [Suspect]
     Indication: PRODUCT USED FOR UNKNOWN INDICATION
     Route: 048
  6. ALBUTEROL SULFATE AUTOHALER [Concomitant]
     Indication: ASTHMA
     Dosage: UNK
     Dates: start: 20000101

REACTIONS (1)
  - PULMONARY EMBOLISM [None]
